FAERS Safety Report 12051127 (Version 2)
Quarter: 2016Q1

REPORT INFORMATION
  Report Type: Spontaneous
  Country: US (occurrence: US)
  Receive Date: 20160209
  Receipt Date: 20160315
  Transmission Date: 20160526
  Serious: No
  Sender: FDA-Public Use
  Company Number: US-PFIZER INC-2016018915

PATIENT
  Age: 58 Year
  Sex: Female
  Weight: 82.55 kg

DRUGS (2)
  1. ZOLOFT [Suspect]
     Active Substance: SERTRALINE HYDROCHLORIDE
     Dosage: TWO 100MG TABLET IN THE MORNING
     Dates: start: 20160110
  2. ZOLOFT [Suspect]
     Active Substance: SERTRALINE HYDROCHLORIDE
     Indication: DEPRESSION
     Dosage: 100 MG, DAILY IN THE MORNING
     Dates: start: 1985, end: 20160109

REACTIONS (1)
  - Drug ineffective [Unknown]
